FAERS Safety Report 5393432-9 (Version None)
Quarter: 2007Q3

REPORT INFORMATION
  Report Type: 
  Country: None (occurrence: None)
  Receive Date: 20070723
  Receipt Date: 20070716
  Transmission Date: 20080115
  Serious: Yes (Other)
  Sender: FDA-Public Use
  Company Number: PHEH2006US13851

PATIENT
  Age: 42 Year
  Sex: Male
  Weight: 137.41 kg

DRUGS (2)
  1. DIOVAN [Suspect]
     Indication: HYPERTENSION
     Dosage: 160 MG, QD
     Dates: start: 20060609, end: 20061001
  2. CRESTOR [Suspect]
     Dosage: 10 MG, QD
     Dates: start: 20060630, end: 20061001

REACTIONS (8)
  - BLOOD CHOLESTEROL INCREASED [None]
  - GLOMERULONEPHRITIS MEMBRANOPROLIFERATIVE [None]
  - HYPERCHLORHYDRIA [None]
  - NEPHROTIC SYNDROME [None]
  - OEDEMA [None]
  - PITTING OEDEMA [None]
  - PROTEIN URINE PRESENT [None]
  - WEIGHT INCREASED [None]
